FAERS Safety Report 10666005 (Version 7)
Quarter: 2015Q1

REPORT INFORMATION
  Report Type: Spontaneous
  Country: US (occurrence: US)
  Receive Date: 20141219
  Receipt Date: 20150129
  Transmission Date: 20150720
  Serious: Yes (Death, Hospitalization, Other)
  Sender: FDA-Public Use
  Company Number: US-UNITED THERAPEUTICS-UNT-2014-012467

PATIENT
  Age: 37 Year
  Sex: Female
  Weight: 106.58 kg

DRUGS (8)
  1. REMODULIN [Suspect]
     Active Substance: TREPROSTINIL
     Dosage: 0.064 ?G/KG, CONTINUING
     Route: 041
     Dates: start: 20141226
  2. REMODULIN [Suspect]
     Active Substance: TREPROSTINIL
     Dosage: 0.064 ?G/KG, CONTINUING
     Route: 041
     Dates: start: 20130816
  3. ASPIRIN                            /00002701/ [Concomitant]
     Active Substance: ASPIRIN
     Indication: PRODUCT USED FOR UNKNOWN INDICATION
  4. REMODULIN [Suspect]
     Active Substance: TREPROSTINIL
     Indication: COR PULMONALE CHRONIC
     Dosage: 0.064 ?G/KG, CONTINUING
     Route: 041
     Dates: start: 20070401
  5. REMODULIN [Suspect]
     Active Substance: TREPROSTINIL
     Indication: SYSTEMIC LUPUS ERYTHEMATOSUS
     Dosage: 0.064 ?G/KG, CONTINUING
     Route: 041
     Dates: start: 20070509
  6. AFRIN [Suspect]
     Active Substance: OXYMETAZOLINE
     Indication: PRODUCT USED FOR UNKNOWN INDICATION
  7. REMODULIN [Suspect]
     Active Substance: TREPROSTINIL
     Indication: PULMONARY HYPERTENSION
     Dosage: 0.064 ?G/KG, CONTINUING
     Route: 041
     Dates: start: 20070322
  8. COUMADIN [Concomitant]
     Active Substance: WARFARIN SODIUM
     Indication: PRODUCT USED FOR UNKNOWN INDICATION

REACTIONS (8)
  - Feeling abnormal [Unknown]
  - Systemic lupus erythematosus [Unknown]
  - Malaise [Unknown]
  - Death [Fatal]
  - Pulmonary arterial hypertension [Unknown]
  - Dyspnoea [Unknown]
  - Device related infection [Unknown]
  - Injection site discharge [Unknown]

NARRATIVE: CASE EVENT DATE: 201412
